FAERS Safety Report 21350188 (Version 1)
Quarter: 2022Q3

REPORT INFORMATION
  Report Type: Spontaneous
  Country: US (occurrence: None)
  Receive Date: 20220917
  Receipt Date: 20220917
  Transmission Date: 20221026
  Serious: Yes (Disabling)
  Sender: FDA-Public Use
  Company Number: None

PATIENT
  Age: 60 Year
  Sex: Male
  Weight: 66.6 kg

DRUGS (11)
  1. PROPRANOLOL [Suspect]
     Active Substance: PROPRANOLOL HYDROCHLORIDE
     Indication: Chest pain
     Dosage: OTHER QUANTITY : 1 TABLET(S);?FREQUENCY : TWICE A DAY;?
     Route: 048
     Dates: start: 20220621, end: 20220729
  2. PROPRANOLOL [Suspect]
     Active Substance: PROPRANOLOL HYDROCHLORIDE
     Indication: Palpitations
  3. PYRIDOSTIGMINE [Concomitant]
     Active Substance: PYRIDOSTIGMINE
  4. Glycoyrrolate [Concomitant]
  5. ASPIRIN [Concomitant]
     Active Substance: ASPIRIN
  6. Calcium Citrate+D3 [Concomitant]
  7. CO Q-10 [Concomitant]
  8. FISH OIL [Concomitant]
  9. Multi-vitamin [Concomitant]
  10. LORATADINE [Concomitant]
     Active Substance: LORATADINE
  11. Anttihistamine [Concomitant]

REACTIONS (1)
  - Myasthenia gravis [None]

NARRATIVE: CASE EVENT DATE: 20220722
